FAERS Safety Report 12297958 (Version 5)
Quarter: 2016Q2

REPORT INFORMATION
  Report Type: Report from Study
  Country: BE (occurrence: BE)
  Receive Date: 20160422
  Receipt Date: 20160520
  Transmission Date: 20160815
  Serious: Yes (Hospitalization)
  Sender: FDA-Public Use
  Company Number: BE-PFIZER INC-2016184122

PATIENT
  Age: 76 Year
  Sex: Male
  Weight: 73 kg

DRUGS (3)
  1. AMLODIPINE BESILATE [Suspect]
     Active Substance: AMLODIPINE BESYLATE
     Indication: HYPERTENSION
     Dosage: 5 MG, 1X/DAY
     Route: 048
     Dates: start: 20160212
  2. MSB0010718C [Suspect]
     Active Substance: AVELUMAB
     Indication: BLADDER TRANSITIONAL CELL CARCINOMA
     Dosage: 10 MG/KG (775 MG), CYCLIC (ONCE EVERY 2 WEEKS)
     Route: 042
     Dates: start: 20160304, end: 20160304
  3. DAFALGAN [Concomitant]
     Active Substance: ACETAMINOPHEN
     Indication: PAIN
     Dosage: 1 G, UNK
     Route: 048
     Dates: start: 20160316

REACTIONS (3)
  - Diarrhoea [Recovered/Resolved]
  - Lipase increased [Recovered/Resolved]
  - Infusion related reaction [Recovered/Resolved]

NARRATIVE: CASE EVENT DATE: 20160304
